FAERS Safety Report 10128094 (Version 2)
Quarter: 2014Q2

REPORT INFORMATION
  Report Type: Report from Study
  Country: CA (occurrence: CA)
  Receive Date: 20140428
  Receipt Date: 20140505
  Transmission Date: 20141212
  Serious: Yes (Hospitalization)
  Sender: FDA-Public Use
  Company Number: CA-ROCHE-1390739

PATIENT
  Sex: Female

DRUGS (11)
  1. RITUXAN [Suspect]
     Indication: RHEUMATOID ARTHRITIS
     Dosage: FREQUENCY: DAY 1, 15,?DATE OF LAST DOSE PRIOR TO EVENT : 23/OCT/2013.
     Route: 042
     Dates: start: 20130325
  2. DIPHENHYDRAMINE HCL [Concomitant]
     Indication: PREMEDICATION
     Route: 048
  3. ACETAMINOPHEN [Concomitant]
     Indication: PREMEDICATION
     Route: 048
  4. METHYLPREDNISOLONE [Concomitant]
     Indication: PREMEDICATION
     Route: 042
  5. OMEGA 3 [Concomitant]
  6. PLAQUENIL [Concomitant]
  7. LEFLUNOMIDE [Concomitant]
  8. NOVAMILOR [Concomitant]
  9. TYLENOL #3 (CANADA) [Concomitant]
  10. PROMETRIUM [Concomitant]
  11. AMITRIPTYLINE [Concomitant]

REACTIONS (1)
  - Colitis [Unknown]
